FAERS Safety Report 19650069 (Version 3)
Quarter: 2021Q3

REPORT INFORMATION
  Report Type: Report from Study
  Country: BR (occurrence: BR)
  Receive Date: 20210803
  Receipt Date: 20210927
  Transmission Date: 20211014
  Serious: Yes (Death, Hospitalization)
  Sender: FDA-Public Use
  Company Number: NVSC2021BR172588

PATIENT
  Age: 27 Year
  Sex: Male

DRUGS (2)
  1. TRAMETINIB [Suspect]
     Active Substance: TRAMETINIB
     Indication: METASTATIC MALIGNANT MELANOMA
     Dosage: UNK
     Route: 065
     Dates: start: 20191009
  2. DABRAFENIB [Suspect]
     Active Substance: DABRAFENIB
     Indication: METASTATIC MALIGNANT MELANOMA
     Dosage: UNK
     Route: 065
     Dates: start: 20191009

REACTIONS (16)
  - Nausea [Unknown]
  - Loss of consciousness [Fatal]
  - Hallucination, visual [Fatal]
  - Bradycardia [Fatal]
  - Malignant neoplasm progression [Fatal]
  - Decreased appetite [Unknown]
  - Confusional state [Fatal]
  - General physical health deterioration [Fatal]
  - Psychomotor hyperactivity [Fatal]
  - Meningeal thickening [Fatal]
  - Intraventricular haemorrhage [Fatal]
  - Speech disorder [Fatal]
  - Cerebral ventricle dilatation [Fatal]
  - Metastatic malignant melanoma [Fatal]
  - Seizure [Fatal]
  - Polyp [Unknown]

NARRATIVE: CASE EVENT DATE: 20191126
